FAERS Safety Report 5708605-2 (Version None)
Quarter: 2008Q2

REPORT INFORMATION
  Report Type: 
  Country: None (occurrence: None)
  Receive Date: 20080417
  Receipt Date: 20080414
  Transmission Date: 20081010
  Serious: Yes (Other)
  Sender: FDA-Public Use
  Company Number: GB-WYE-G01316908

PATIENT
  Sex: Female

DRUGS (1)
  1. SIROLIMUS [Suspect]
     Dosage: UNKNOWN
     Dates: end: 20071201

REACTIONS (3)
  - ANGIOEDEMA [None]
  - FISTULA [None]
  - LYMPHOEDEMA [None]
